FAERS Safety Report 7274432-0 (Version None)
Quarter: 2011Q1

REPORT INFORMATION
  Report Type: 
  Country: None (occurrence: None)
  Receive Date: 20110204
  Receipt Date: 20110125
  Transmission Date: 20110831
  Serious: Yes (Other)
  Sender: FDA-Public Use
  Company Number: US-JNJFOC-20110107386

PATIENT
  Age: 20 Year
  Sex: Male

DRUGS (3)
  1. REMICADE [Suspect]
     Indication: ILL-DEFINED DISORDER
     Route: 042
  2. REMICADE [Suspect]
     Route: 042
  3. REMICADE [Suspect]
     Dosage: AT WEEK 0,2, AND 6
     Route: 042

REACTIONS (3)
  - HYDRONEPHROSIS [None]
  - CONDITION AGGRAVATED [None]
  - ENTEROCOLONIC FISTULA [None]
